FAERS Safety Report 4415235-1 (Version None)
Quarter: 2004Q3

REPORT INFORMATION
  Report Type: 
  Country: None (occurrence: None)
  Receive Date: 20040729
  Receipt Date: 20040716
  Transmission Date: 20050211
  Serious: Yes (Other)
  Sender: FDA-Public Use
  Company Number: 2004049601

PATIENT
  Sex: Female

DRUGS (4)
  1. NEURONTIN [Suspect]
     Indication: ILL-DEFINED DISORDER
  2. METHADONE HCL [Concomitant]
  3. OXYCONTIN [Concomitant]
  4. DIAZEPAM [Concomitant]

REACTIONS (2)
  - BONE NEOPLASM [None]
  - NEUROFIBROMATOSIS [None]
